FAERS Safety Report 7287787-8 (Version None)
Quarter: 2011Q1

REPORT INFORMATION
  Report Type: 
  Country: None (occurrence: None)
  Receive Date: 20110211
  Receipt Date: 20110203
  Transmission Date: 20110831
  Serious: Yes (Hospitalization)
  Sender: FDA-Public Use
  Company Number: FR-NAPPMUNDI-GBR-2011-0007717

PATIENT
  Sex: Female

DRUGS (6)
  1. SPASMINE                           /01561701/ [Concomitant]
  2. MORPHINE SULFATE [Suspect]
     Indication: PRODUCT USED FOR UNKNOWN INDICATION
     Dosage: 10 MG, PRN
     Route: 048
     Dates: end: 20100821
  3. FORLAX [Concomitant]
  4. RIVOTRIL [Concomitant]
  5. DAFALGAN [Concomitant]
  6. TRANXENE [Concomitant]

REACTIONS (10)
  - WEIGHT DECREASED [None]
  - ANXIETY [None]
  - CONSTIPATION [None]
  - PAIN [None]
  - HALLUCINATION, VISUAL [None]
  - CONFUSIONAL STATE [None]
  - DRUG DEPENDENCE [None]
  - ASTHENIA [None]
  - FAECALOMA [None]
  - CRYING [None]
